FAERS Safety Report 8251055-8 (Version None)
Quarter: 2012Q1

REPORT INFORMATION
  Report Type: 
  Country: None (occurrence: None)
  Receive Date: 20120320
  Receipt Date: 20120124
  Transmission Date: 20120608
  Serious: No
  Sender: FDA-Public Use
  Company Number: US-2012-10066

PATIENT
  Age: 45 Year
  Sex: Male
  Weight: 104.3 kg

DRUGS (2)
  1. SAMSCA [Suspect]
     Indication: BLOOD POTASSIUM DECREASED
     Dosage: 30 MG MILLIGRAM(S), QD, ORAL
     Route: 048
     Dates: start: 20120116
  2. SAMSCA [Suspect]
     Indication: BLOOD SODIUM DECREASED
     Dosage: 30 MG MILLIGRAM(S), QD, ORAL
     Route: 048
     Dates: start: 20120116

REACTIONS (1)
  - POLLAKIURIA [None]
